FAERS Safety Report 5469872-6 (Version None)
Quarter: 2007Q3

REPORT INFORMATION
  Report Type: 
  Country: None (occurrence: None)
  Receive Date: 20070927
  Receipt Date: 20070924
  Transmission Date: 20080115
  Serious: Yes (Death, Life-Threatening)
  Sender: FDA-Public Use
  Company Number: FRWYE357124SEP07

PATIENT
  Sex: Male

DRUGS (9)
  1. TAZOCILLINE [Suspect]
     Indication: ABDOMINAL INFECTION
     Route: 042
     Dates: start: 20070801, end: 20070808
  2. IMOVANE [Concomitant]
     Dosage: UNKNOWN
  3. FLAGYL [Concomitant]
     Indication: ABDOMINAL INFECTION
     Dosage: UNKNOWN
     Dates: start: 20070808, end: 20070810
  4. DIPIPERON [Concomitant]
     Dosage: UNKNOWN
  5. ATARAX [Concomitant]
     Dosage: UNKNOWN
  6. SPECIAFOLDINE [Concomitant]
     Dosage: UNKNOWN
  7. PREVISCAN [Interacting]
     Indication: PHLEBITIS
     Route: 048
     Dates: start: 20070716, end: 20070803
  8. PREVISCAN [Interacting]
     Route: 048
     Dates: start: 20070807, end: 20070809
  9. TERCIAN [Concomitant]
     Dosage: UNKNOWN

REACTIONS (11)
  - ABDOMINAL DISTENSION [None]
  - ADRENAL HAEMATOMA [None]
  - ADRENAL INSUFFICIENCY [None]
  - ANAEMIA [None]
  - DRUG INTERACTION [None]
  - FAECALOMA [None]
  - GASTRIC HAEMORRHAGE [None]
  - INTERNATIONAL NORMALISED RATIO INCREASED [None]
  - PROTHROMBIN TIME SHORTENED [None]
  - SPLENIC HAEMATOMA [None]
  - VOMITING [None]
